FAERS Safety Report 8561124-0 (Version None)
Quarter: 2012Q3

REPORT INFORMATION
  Report Type: 
  Country: None (occurrence: None)
  Receive Date: 20120723
  Receipt Date: 20120712
  Transmission Date: 20120928
  Serious: Yes (Other)
  Sender: FDA-Public Use
  Company Number: ACO_31123_2012

PATIENT
  Age: 50 Year
  Sex: Female

DRUGS (3)
  1. ANALGESICS [Suspect]
     Indication: PAIN
  2. AMPYRA [Suspect]
     Indication: PRODUCT USED FOR UNKNOWN INDICATION
     Dosage: 10 MG, BID
     Dates: start: 20100501
  3. CYMBALTA [Suspect]
     Indication: PAIN
     Dosage: 60 MG, QD

REACTIONS (3)
  - SPINAL OSTEOARTHRITIS [None]
  - PAIN [None]
  - SLUGGISHNESS [None]
